FAERS Safety Report 6423545-1 (Version None)
Quarter: 2009Q4

REPORT INFORMATION
  Report Type: 
  Country: None (occurrence: None)
  Receive Date: 20091102
  Receipt Date: 20090617
  Transmission Date: 20100525
  Serious: Yes (Other)
  Sender: FDA-Public Use
  Company Number: A0792033A

PATIENT
  Sex: Female

DRUGS (1)
  1. RYTHMOL SR [Suspect]
     Indication: DRUG USE FOR UNKNOWN INDICATION

REACTIONS (2)
  - ATRIAL FIBRILLATION [None]
  - INAPPROPRIATE SCHEDULE OF DRUG ADMINISTRATION [None]
